FAERS Safety Report 7949945-6 (Version None)
Quarter: 2011Q4

REPORT INFORMATION
  Report Type: 
  Country: None (occurrence: None)
  Receive Date: 20111130
  Receipt Date: 20111122
  Transmission Date: 20120403
  Serious: Yes (Disabling, Other)
  Sender: FDA-Public Use
  Company Number: FR-TEVA-291990ISR

PATIENT
  Sex: Female

DRUGS (3)
  1. ANALGESICS [Concomitant]
  2. COPAXONE [Suspect]
     Dates: start: 20110101
  3. COPAXONE [Suspect]
     Indication: MULTIPLE SCLEROSIS
     Dates: start: 20090101, end: 20101201

REACTIONS (6)
  - VULVOVAGINAL INJURY [None]
  - VULVOVAGINAL PRURITUS [None]
  - INJECTION SITE PRURITUS [None]
  - VULVOVAGINAL BURNING SENSATION [None]
  - DYSPAREUNIA [None]
  - LIBIDO DECREASED [None]
